FAERS Safety Report 4307597-0 (Version None)
Quarter: 2004Q1

REPORT INFORMATION
  Report Type: 
  Country: None (occurrence: None)
  Receive Date: 20040226
  Receipt Date: 20040220
  Transmission Date: 20041129
  Serious: Yes (Hospitalization)
  Sender: FDA-Public Use
  Company Number: 2004GB00451

PATIENT
  Sex: Male

DRUGS (1)
  1. MERONEM [Suspect]
     Dates: start: 20040101

REACTIONS (3)
  - CHEST DISCOMFORT [None]
  - HYPERSENSITIVITY [None]
  - RASH [None]
